FAERS Safety Report 9455479 (Version 3)
Quarter: 2016Q3

REPORT INFORMATION
  Report Type: Report from Study
  Country: US (occurrence: US)
  Receive Date: 20130813
  Receipt Date: 20160810
  Transmission Date: 20161109
  Serious: Yes (Hospitalization, Other)
  Sender: FDA-Public Use
  Company Number: US-ROCHE-1261021

PATIENT
  Sex: Female
  Weight: 57.66 kg

DRUGS (12)
  1. DESMOPRESSIN [Concomitant]
     Active Substance: DESMOPRESSIN
     Route: 048
  2. NUTROPIN AQ [Suspect]
     Active Substance: SOMATROPIN
     Route: 058
  3. NUTROPIN AQ [Suspect]
     Active Substance: SOMATROPIN
     Indication: HYPOPITUITARISM
     Route: 058
     Dates: start: 20031021
  4. ASPIRIN. [Concomitant]
     Active Substance: ASPIRIN
     Route: 048
     Dates: start: 20110722, end: 20110727
  5. GEMFIBROZIL. [Concomitant]
     Active Substance: GEMFIBROZIL
     Route: 048
     Dates: start: 20110722, end: 20110727
  6. ATENOLOL. [Concomitant]
     Active Substance: ATENOLOL
     Dosage: 1TAB
     Route: 048
     Dates: start: 20110722, end: 20110727
  7. GLARGINE [Concomitant]
     Dosage: 100UNIT/ML
     Route: 058
  8. LISPRO INSULIN [Concomitant]
     Active Substance: INSULIN LISPRO
     Dosage: 100UNIT/ML
     Route: 058
     Dates: start: 20110722
  9. LEVOTHYROXINE. [Concomitant]
     Active Substance: LEVOTHYROXINE
     Route: 048
     Dates: start: 20110722
  10. ATORVASTATIN [Concomitant]
     Active Substance: ATORVASTATIN
     Route: 048
  11. HYDROCORTISONE. [Concomitant]
     Active Substance: HYDROCORTISONE
     Route: 048
     Dates: start: 20110722
  12. VALSARTAN. [Concomitant]
     Active Substance: VALSARTAN
     Route: 048
     Dates: start: 20110722

REACTIONS (13)
  - Ecchymosis [Unknown]
  - Hypoglycaemia [Unknown]
  - Contusion [Unknown]
  - Pneumothorax [Unknown]
  - Hypotension [Unknown]
  - Urosepsis [Recovering/Resolving]
  - Vision blurred [Unknown]
  - Bradycardia [Unknown]
  - Brain operation [Unknown]
  - Pituitary tumour [Unknown]
  - Malaise [Unknown]
  - Pneumonia [Unknown]
  - Hyperglycaemia [Unknown]

NARRATIVE: CASE EVENT DATE: 2009
